FAERS Safety Report 8297928-1 (Version None)
Quarter: 2012Q2

REPORT INFORMATION
  Report Type: 
  Country: None (occurrence: None)
  Receive Date: 20120419
  Receipt Date: 20120416
  Transmission Date: 20120825
  Serious: Yes (Hospitalization)
  Sender: FDA-Public Use
  Company Number: JP-SANOFI-AVENTIS-2012SA026603

PATIENT
  Age: 68 Year
  Sex: Male
  Weight: 67 kg

DRUGS (8)
  1. LEUCOVORIN CALCIUM [Suspect]
     Route: 041
     Dates: start: 20120330, end: 20120330
  2. OXALIPLATIN [Suspect]
     Indication: COLON CANCER
     Route: 041
     Dates: start: 20120313, end: 20120313
  3. OXALIPLATIN [Suspect]
     Route: 041
     Dates: start: 20120330, end: 20120330
  4. FLUOROURACIL [Suspect]
     Indication: COLON CANCER
     Route: 040
     Dates: start: 20120313, end: 20120313
  5. FLUOROURACIL [Suspect]
     Route: 040
     Dates: start: 20120330, end: 20120330
  6. LEUCOVORIN CALCIUM [Suspect]
     Indication: COLON CANCER
     Route: 041
     Dates: start: 20120313, end: 20120313
  7. FLUOROURACIL [Suspect]
     Route: 041
     Dates: start: 20120313, end: 20120313
  8. FLUOROURACIL [Suspect]
     Route: 041
     Dates: start: 20120330, end: 20120330

REACTIONS (1)
  - CEREBRAL INFARCTION [None]
